FAERS Safety Report 8639599 (Version 5)
Quarter: 2016Q4

REPORT INFORMATION
  Report Type: Report from Study
  Country: JP (occurrence: JP)
  Receive Date: 20120627
  Receipt Date: 20161216
  Transmission Date: 20170207
  Serious: Yes (Hospitalization)
  Sender: FDA-Public Use
  Company Number: JP-ROCHE-1067449

PATIENT
  Age: 34 Year
  Sex: Female
  Weight: 48.03 kg

DRUGS (21)
  1. OMALIZUMAB [Suspect]
     Active Substance: OMALIZUMAB
     Indication: ASTHMA
     Route: 058
     Dates: start: 20100415
  2. OMALIZUMAB [Suspect]
     Active Substance: OMALIZUMAB
     Route: 058
     Dates: start: 20100728, end: 20100728
  3. PREDNISOLONE. [Concomitant]
     Active Substance: PREDNISOLONE
     Route: 065
     Dates: start: 20080116
  4. PREDNISOLONE. [Concomitant]
     Active Substance: PREDNISOLONE
     Route: 065
     Dates: start: 20101102
  5. LENDORMIN [Concomitant]
     Active Substance: BROTIZOLAM
  6. FLUTICASONE PROPIONATE/SALMETEROL XINAFOATE [Concomitant]
     Active Substance: FLUTICASONE PROPIONATE\SALMETEROL XINAFOATE
     Route: 065
     Dates: start: 20070807, end: 20100811
  7. MEPTIN [Concomitant]
     Active Substance: PROCATEROL HYDROCHLORIDE
     Route: 065
     Dates: start: 20080808
  8. SELBEX [Concomitant]
     Active Substance: TEPRENONE
  9. SYMBICORT [Concomitant]
     Active Substance: BUDESONIDE\FORMOTEROL FUMARATE DIHYDRATE
     Indication: ASTHMA
     Route: 065
     Dates: start: 20100811
  10. LOXONIN [Concomitant]
     Active Substance: LOXOPROFEN SODIUM
  11. PURSENNID [Concomitant]
     Active Substance: SENNOSIDES A AND B
     Route: 065
     Dates: start: 20070711
  12. ALLEGRA [Concomitant]
     Active Substance: FEXOFENADINE HYDROCHLORIDE
     Route: 065
     Dates: start: 20071003
  13. PREDNISOLONE. [Concomitant]
     Active Substance: PREDNISOLONE
     Route: 065
     Dates: start: 20101109
  14. TAKEPRON [Concomitant]
     Active Substance: LANSOPRAZOLE
     Indication: PRODUCT USED FOR UNKNOWN INDICATION
  15. CELESTAMINE (JAPAN) [Concomitant]
     Active Substance: BETAMETHASONE\DEXCHLORPHENIRAMINE MALEATE
     Route: 065
     Dates: start: 20091007
  16. ADOAIR [Concomitant]
     Active Substance: FLUTICASONE PROPIONATE\SALMETEROL XINAFOATE
     Indication: ASTHMA
     Route: 065
     Dates: start: 20070807, end: 20100811
  17. METHYCOBAL [Concomitant]
     Active Substance: METHYLCOBALAMIN
  18. MEXITIL [Concomitant]
     Active Substance: MEXILETINE HYDROCHLORIDE
  19. PRIMPERAN [Concomitant]
     Active Substance: METOCLOPRAMIDE HYDROCHLORIDE
  20. THEOLONG [Concomitant]
     Active Substance: THEOPHYLLINE ANHYDROUS
     Route: 065
     Dates: start: 20080611
  21. CLARITIN [Concomitant]
     Active Substance: LORATADINE
     Route: 065

REACTIONS (4)
  - Eosinophilic granulomatosis with polyangiitis [Recovering/Resolving]
  - Concomitant disease aggravated [Recovering/Resolving]
  - Pain [Recovering/Resolving]
  - Hypoaesthesia [Recovering/Resolving]

NARRATIVE: CASE EVENT DATE: 20101030
